FAERS Safety Report 5657785-6 (Version None)
Quarter: 2008Q1

REPORT INFORMATION
  Report Type: 
  Country: None (occurrence: None)
  Receive Date: 20080310
  Receipt Date: 20070822
  Transmission Date: 20080703
  Serious: No
  Sender: FDA-Public Use
  Company Number: US-ASTRAZENECA-2007UW20108

PATIENT
  Sex: Male

DRUGS (2)
  1. LISINOPRIL [Suspect]
     Route: 048
  2. DIOVAN [Concomitant]

REACTIONS (4)
  - COUGH [None]
  - EYE PRURITUS [None]
  - LACRIMATION INCREASED [None]
  - THROAT IRRITATION [None]
